FAERS Safety Report 10977109 (Version 2)
Quarter: 2015Q2

REPORT INFORMATION
  Report Type: Spontaneous
  Country: KR (occurrence: KR)
  Receive Date: 20150402
  Receipt Date: 20150417
  Transmission Date: 20150821
  Serious: No
  Sender: FDA-Public Use
  Company Number: KR-009507513-1503KOR006090

PATIENT
  Age: 59 Year
  Sex: Male
  Weight: 82 kg

DRUGS (18)
  1. PACETIN [Concomitant]
     Indication: INFECTION PROPHYLAXIS
     Dosage: 1 G, BID
     Route: 042
     Dates: start: 20150204, end: 20150206
  2. ROCURONIUM BROMIDE. [Suspect]
     Active Substance: ROCURONIUM BROMIDE
     Dosage: 50 UNK, UNK
     Route: 042
     Dates: start: 20150204
  3. AMOSARTAN [Concomitant]
     Indication: PAIN PROPHYLAXIS
     Dosage: 1 TABLET, QD
     Route: 048
     Dates: start: 20150203
  4. HALCION [Concomitant]
     Active Substance: TRIAZOLAM
     Indication: PROPHYLAXIS
     Dosage: 0.25 MG, ONCE
     Route: 048
     Dates: start: 20150204, end: 20150204
  5. RAMOSETRON HYDROCHLORIDE [Concomitant]
     Active Substance: RAMOSETRON HYDROCHLORIDE
     Indication: PROPHYLAXIS OF NAUSEA AND VOMITING
     Dosage: 0.3 MG, QD
     Route: 042
     Dates: start: 20150204
  6. FENTANYL CITRATE. [Concomitant]
     Active Substance: FENTANYL CITRATE
     Indication: PAIN PROPHYLAXIS
     Dosage: 100 MICROGRAM, ONCE
     Route: 008
     Dates: start: 20150204, end: 20150204
  7. COLYTE [Concomitant]
     Active Substance: POLYETHYLENE GLYCOL 3350\POTASSIUM CHLORIDE\SODIUM BICARBONATE\SODIUM CHLORIDE\SODIUM SULFATE ANHYDROUS
     Indication: PAIN PROPHYLAXIS
     Dosage: 274.31 G, ONCE
     Route: 048
     Dates: start: 20150203, end: 20150203
  8. CONCOR [Concomitant]
     Active Substance: BISOPROLOL FUMARATE
     Indication: PAIN PROPHYLAXIS
     Dosage: 1.25 MG, QD
     Route: 048
     Dates: start: 20150203
  9. BRIDION [Suspect]
     Active Substance: SUGAMMADEX
     Indication: NEUROMUSCULAR BLOCKADE REVERSAL
     Dosage: 164 MG, ONCE
     Route: 042
     Dates: start: 20150204
  10. AMLOPIN (AMLODIPINE MALEATE) [Concomitant]
     Dosage: 5 MG, ONCE
     Route: 048
     Dates: start: 20150204, end: 20150204
  11. DENOGAN [Concomitant]
     Dosage: 10 G, CONTINUOUS INFUSION
     Route: 041
     Dates: start: 20150204, end: 20150208
  12. DICHLODIDE [Concomitant]
     Indication: PAIN PROPHYLAXIS
     Dosage: 12.5 MG, QD
     Route: 048
     Dates: start: 20150203
  13. ROCURONIUM BROMIDE. [Suspect]
     Active Substance: ROCURONIUM BROMIDE
     Indication: ANAESTHESIA PROCEDURE
     Dosage: 50 MG, ONCE
     Route: 042
     Dates: start: 20150204
  14. NASEA [Concomitant]
     Active Substance: RAMOSETRON HYDROCHLORIDE
     Indication: PAIN PROPHYLAXIS
     Dosage: 0.6 MG, CONTINUOUS INFUSION
     Route: 041
     Dates: start: 20150204, end: 20150208
  15. GASTER [Concomitant]
     Active Substance: FAMOTIDINE
     Indication: HAEMORRHAGE PROPHYLAXIS
     Dosage: 20 MG, BID
     Route: 042
     Dates: start: 20150204, end: 20150206
  16. AMBROXOL HYDROCHLORIDE [Concomitant]
     Active Substance: AMBROXOL HYDROCHLORIDE
     Indication: PROPHYLAXIS
     Dosage: 15 MG, BID
     Route: 042
     Dates: start: 20150204, end: 20150206
  17. FENTANYL CITRATE. [Concomitant]
     Active Substance: FENTANYL CITRATE
     Dosage: 1500 MICROGRAM, CONTINUOUS INFUSION
     Route: 041
     Dates: start: 20150204, end: 20150208
  18. DENOGAN [Concomitant]
     Indication: PAIN PROPHYLAXIS
     Dosage: 2 G, ONCE
     Route: 008
     Dates: start: 20150204, end: 20150204

REACTIONS (1)
  - Pyrexia [Recovered/Resolved]

NARRATIVE: CASE EVENT DATE: 20150204
